FAERS Safety Report 15843919 (Version 3)
Quarter: 2019Q4

REPORT INFORMATION
  Report Type: Spontaneous
  Country: IT (occurrence: IT)
  Receive Date: 20190118
  Receipt Date: 20191203
  Transmission Date: 20200122
  Serious: Yes (Other)
  Sender: FDA-Public Use
  Company Number: IT-PFIZER INC-2019024410

PATIENT
  Age: 79 Year
  Sex: Female

DRUGS (1)
  1. METHOTREXATE. [Suspect]
     Active Substance: METHOTREXATE
     Indication: RHEUMATOID ARTHRITIS
     Dosage: 15 MG/DAY (FOR 8 DAYS)

REACTIONS (6)
  - Stomatitis [Unknown]
  - Odynophagia [Recovering/Resolving]
  - Toxicity to various agents [Recovering/Resolving]
  - Pancytopenia [Unknown]
  - Skin erosion [Recovering/Resolving]
  - Accidental overdose [Unknown]
